FAERS Safety Report 9576711 (Version 1)
Quarter: 2013Q4

REPORT INFORMATION
  Report Type: Spontaneous
  Country: US (occurrence: US)
  Receive Date: 20131001
  Receipt Date: 20131001
  Transmission Date: 20140711
  Serious: No
  Sender: FDA-Public Use
  Company Number: US-AMGEN-USASP2013004617

PATIENT
  Age: 51 Year
  Sex: Female

DRUGS (10)
  1. ENBREL [Suspect]
     Indication: PRODUCT USED FOR UNKNOWN INDICATION
     Dosage: 50 MG, QWK
     Route: 058
  2. SYNTHROID [Concomitant]
     Dosage: 125 MUG, UNK
  3. LISINOPRIL [Concomitant]
     Dosage: 20 MG, UNK
  4. TAMSULOSIN [Concomitant]
     Dosage: 0.4 MG, UNK
  5. FOLIC ACID [Concomitant]
     Dosage: 1 MG, UNK
  6. VITAMIN B-12 [Concomitant]
     Dosage: 1000 MUG, UNK
  7. VITAMIN D                          /00107901/ [Concomitant]
     Dosage: 50000 UNIT, UNK
  8. CRESTOR [Concomitant]
     Dosage: 20 MG, UNK
  9. OXYCODONE/APAP                     /00867901/ [Concomitant]
     Dosage: 5-325 MG, UNK
  10. CALCIUM [Concomitant]
     Dosage: 600 UNK, UNK

REACTIONS (1)
  - Nephrolithiasis [Unknown]
